FAERS Safety Report 25216306 (Version 1)
Quarter: 2025Q2

REPORT INFORMATION
  Report Type: Report from Study
  Country: JP (occurrence: JP)
  Receive Date: 20250418
  Receipt Date: 20250418
  Transmission Date: 20250717
  Serious: Yes (Other)
  Sender: ROCHE
  Company Number: JP-ROCHE-10000257657

PATIENT

DRUGS (4)
  1. ENTRECTINIB [Suspect]
     Active Substance: ENTRECTINIB
     Indication: Non-small cell lung cancer
     Route: 048
  2. ENTRECTINIB [Suspect]
     Active Substance: ENTRECTINIB
     Route: 048
  3. ENTRECTINIB [Suspect]
     Active Substance: ENTRECTINIB
     Route: 048
  4. ENTRECTINIB [Suspect]
     Active Substance: ENTRECTINIB
     Route: 048

REACTIONS (89)
  - Cognitive disorder [Unknown]
  - Ataxia [Unknown]
  - Syncope [Unknown]
  - Renal impairment [Unknown]
  - Blood creatinine increased [Unknown]
  - Neutrophil count decreased [Unknown]
  - Renal disorder [Unknown]
  - Dizziness [Unknown]
  - Neutropenia [Unknown]
  - Gait disturbance [Unknown]
  - Cardiac failure [Unknown]
  - Anaemia [Unknown]
  - Delirium [Unknown]
  - Interstitial lung disease [Unknown]
  - Nausea [Unknown]
  - Pneumonia aspiration [Unknown]
  - Pulmonary embolism [Unknown]
  - Sepsis [Unknown]
  - Vomiting [Unknown]
  - Troponin I increased [Unknown]
  - Hepatic function abnormal [Unknown]
  - Cardiac disorder [Unknown]
  - Hyperuricaemia [Unknown]
  - Alanine aminotransferase increased [Unknown]
  - Aspartate aminotransferase increased [Unknown]
  - Dysarthria [Unknown]
  - Ejection fraction decreased [Unknown]
  - Infectious pleural effusion [Unknown]
  - Decreased appetite [Unknown]
  - Memory impairment [Unknown]
  - Myocarditis [Unknown]
  - Pneumonia [Unknown]
  - Rash [Unknown]
  - Urinary tract infection [Unknown]
  - Taste disorder [Unknown]
  - Movement disorder [Unknown]
  - Cardiac failure acute [Unknown]
  - Acute kidney injury [Unknown]
  - Adrenal insufficiency [Unknown]
  - Amnesia [Unknown]
  - Pneumonia bacterial [Unknown]
  - Urinary tract infection bacterial [Unknown]
  - Bradyarrhythmia [Unknown]
  - Blood creatine phosphokinase increased [Unknown]
  - Cardiac tamponade [Unknown]
  - Cardiomyopathy [Unknown]
  - Cerebral haemorrhage [Unknown]
  - Cerebrovascular accident [Unknown]
  - Confusional state [Unknown]
  - Seizure [Unknown]
  - Deep vein thrombosis [Unknown]
  - Diarrhoea [Unknown]
  - Disorientation [Unknown]
  - Intervertebral disc protrusion [Unknown]
  - Dysphoria [Unknown]
  - Dyslalia [Unknown]
  - Dysphagia [Unknown]
  - Erythema multiforme [Unknown]
  - Femoral neck fracture [Unknown]
  - Femur fracture [Unknown]
  - Pyrexia [Unknown]
  - Generalised oedema [Unknown]
  - Humerus fracture [Unknown]
  - Hyponatraemia [Unknown]
  - Hypotension [Unknown]
  - Infection [Unknown]
  - Left ventricular dysfunction [Unknown]
  - Leukoencephalopathy [Unknown]
  - Visual impairment [Unknown]
  - Lumbar vertebral fracture [Unknown]
  - Lung disorder [Unknown]
  - Mental disorder [Unknown]
  - Muscular weakness [Unknown]
  - Orthostatic hypotension [Unknown]
  - Pleural effusion [Unknown]
  - Pleurisy [Unknown]
  - Pneumonitis [Unknown]
  - Post procedural infection [Unknown]
  - Pulmonary artery thrombosis [Unknown]
  - Rapidly progressive osteoarthritis [Unknown]
  - Retinal vein occlusion [Unknown]
  - Right ventricular failure [Unknown]
  - Shock [Unknown]
  - Skin disorder [Unknown]
  - Pain of skin [Unknown]
  - Stress cardiomyopathy [Unknown]
  - Tendon rupture [Unknown]
  - Transaminases increased [Unknown]
  - Weight increased [Unknown]
